FAERS Safety Report 5731926-4 (Version None)
Quarter: 2008Q2

REPORT INFORMATION
  Report Type: 
  Country: None (occurrence: None)
  Receive Date: 20080508
  Receipt Date: 20080428
  Transmission Date: 20081010
  Serious: Yes (Other)
  Sender: FDA-Public Use
  Company Number: US-MERCK-0804USA00707

PATIENT
  Age: 8 Year
  Sex: Female
  Weight: 45 kg

DRUGS (4)
  1. SINGULAIR [Suspect]
     Indication: ASTHMA
     Route: 048
  2. SINGULAIR [Suspect]
     Indication: RHINITIS ALLERGIC
     Route: 048
  3. ZYRTEC [Concomitant]
     Route: 048
     Dates: start: 20050415
  4. FLOVENT [Concomitant]
     Route: 048
     Dates: start: 20051005

REACTIONS (4)
  - ABNORMAL BEHAVIOUR [None]
  - ENURESIS [None]
  - NIGHTMARE [None]
  - PETIT MAL EPILEPSY [None]
